FAERS Safety Report 4422797-7 (Version None)
Quarter: 2004Q3

REPORT INFORMATION
  Report Type: 
  Country: None (occurrence: None)
  Receive Date: 20040719
  Receipt Date: 20040322
  Transmission Date: 20050211
  Serious: Yes (Hospitalization, Other)
  Sender: FDA-Public Use
  Company Number: M04-INT-061

PATIENT
  Age: 62 Year
  Sex: Male

DRUGS (4)
  1. INTEGRILIN [Suspect]
     Indication: ARTERIAL REPAIR
     Dosage: SEE IMAGE
  2. HEPARIN [Concomitant]
  3. ASPIRIN [Concomitant]
  4. CLOPIDOGREL [Concomitant]

REACTIONS (1)
  - PROCEDURAL HYPOTENSION [None]
